FAERS Safety Report 18694392 (Version 1)
Quarter: 2020Q4

REPORT INFORMATION
  Report Type: Spontaneous
  Country: US (occurrence: US)
  Receive Date: 20201231
  Receipt Date: 20201231
  Transmission Date: 20210114
  Serious: No
  Sender: FDA-Public Use
  Company Number: None

PATIENT
  Age: 65 Year
  Sex: Female
  Weight: 47.25 kg

DRUGS (16)
  1. TOPROL XL [Concomitant]
     Active Substance: METOPROLOL SUCCINATE
  2. VITAMIN C [Concomitant]
     Active Substance: ASCORBIC ACID
  3. Q10 UBIQUINOL [Concomitant]
  4. AMBIEN [Concomitant]
     Active Substance: ZOLPIDEM TARTRATE
  5. HUMALOG [Concomitant]
     Active Substance: INSULIN LISPRO
  6. BABY ASPIRIN [Concomitant]
     Active Substance: ASPIRIN
  7. K2 MK4 [Concomitant]
  8. CYCLOBENZAPRINE 5 MG [Suspect]
     Active Substance: CYCLOBENZAPRINE HYDROCHLORIDE
     Indication: MOBILITY DECREASED
     Dosage: ?          QUANTITY:5 TABLET(S);?
     Route: 048
     Dates: start: 20201228, end: 20201229
  9. FISH OIL [Concomitant]
     Active Substance: FISH OIL
  10. LANTUS [Concomitant]
     Active Substance: INSULIN GLARGINE
  11. COZAAR [Concomitant]
     Active Substance: LOSARTAN POTASSIUM
  12. VITAMIN D3 [Concomitant]
     Active Substance: CHOLECALCIFEROL
  13. MULTI [Concomitant]
  14. CYCLOBENZAPRINE 5 MG [Suspect]
     Active Substance: CYCLOBENZAPRINE HYDROCHLORIDE
     Indication: BACK PAIN
     Dosage: ?          QUANTITY:5 TABLET(S);?
     Route: 048
     Dates: start: 20201228, end: 20201229
  15. TRIPLE BORON COMPLEX [Concomitant]
  16. MAGNESIUM [Concomitant]
     Active Substance: MAGNESIUM

REACTIONS (1)
  - Abdominal pain upper [None]

NARRATIVE: CASE EVENT DATE: 20201229
